FAERS Safety Report 21796075 (Version 1)
Quarter: 2022Q4

REPORT INFORMATION
  Report Type: Spontaneous
  Country: US (occurrence: None)
  Receive Date: 20221228
  Receipt Date: 20221228
  Transmission Date: 20230112
  Serious: Yes (Death)
  Sender: FDA-Public Use
  Company Number: None

PATIENT
  Sex: Male
  Weight: 111.9 kg

DRUGS (12)
  1. MEKTOVI [Suspect]
     Active Substance: BINIMETINIB
     Indication: Malignant melanoma
     Dosage: FREQUENCY : TWICE A DAY;?
     Route: 048
  2. BRAFTOVI [Suspect]
     Active Substance: ENCORAFENIB
     Indication: Malignant melanoma
     Dosage: FREQUENCY : DAILY;?
     Route: 048
  3. EASY FIBER [Concomitant]
  4. FISH OIL [Concomitant]
     Active Substance: FISH OIL
  5. ELIQUIS [Concomitant]
     Active Substance: APIXABAN
  6. IBUPROFEN [Concomitant]
     Active Substance: IBUPROFEN
  7. FLECAINIDE ACETATE [Concomitant]
     Active Substance: FLECAINIDE ACETATE
  8. OMEPRAZOLE [Concomitant]
     Active Substance: OMEPRAZOLE
  9. KEPPRA [Concomitant]
     Active Substance: LEVETIRACETAM
  10. METOPROLOL SUCCINATE [Concomitant]
     Active Substance: METOPROLOL SUCCINATE
  11. PERCOCET [Concomitant]
     Active Substance: ACETAMINOPHEN\OXYCODONE HYDROCHLORIDE
  12. SIMVASTATIN [Concomitant]
     Active Substance: SIMVASTATIN

REACTIONS (1)
  - Death [None]
